FAERS Safety Report 6947367-8 (Version None)
Quarter: 2010Q3

REPORT INFORMATION
  Report Type: 
  Country: None (occurrence: None)
  Receive Date: 20100825
  Receipt Date: 20100813
  Transmission Date: 20110219
  Serious: Yes (Other)
  Sender: FDA-Public Use
  Company Number: COL_01502_2010

PATIENT
  Sex: Female

DRUGS (7)
  1. COLGATE TOTAL WHITENING PASTE TOOTHPASTE [Suspect]
     Indication: DENTAL PLAQUE
     Dosage: SEE IMAGE
     Route: 048
     Dates: start: 20100811, end: 20100811
  2. COLGATE TOTAL WHITENING PASTE TOOTHPASTE [Suspect]
     Indication: GINGIVITIS
     Dosage: SEE IMAGE
     Route: 048
     Dates: start: 20100811, end: 20100811
  3. COLGATE TOTAL WHITENING PASTE TOOTHPASTE [Suspect]
     Indication: DENTAL PLAQUE
     Dosage: SEE IMAGE
     Route: 048
     Dates: start: 20100812, end: 20100812
  4. COLGATE TOTAL WHITENING PASTE TOOTHPASTE [Suspect]
     Indication: GINGIVITIS
     Dosage: SEE IMAGE
     Route: 048
     Dates: start: 20100812, end: 20100812
  5. AVALIDE [Concomitant]
  6. PREMARIN [Concomitant]
  7. TOPROL-XL [Concomitant]

REACTIONS (1)
  - ANAPHYLACTIC REACTION [None]
